FAERS Safety Report 7299842-7 (Version None)
Quarter: 2011Q1

REPORT INFORMATION
  Report Type: 
  Country: None (occurrence: None)
  Receive Date: 20110217
  Receipt Date: 20110210
  Transmission Date: 20110831
  Serious: Yes (Other)
  Sender: FDA-Public Use
  Company Number: US-AMGEN-USASP2011007790

PATIENT
  Age: 48 Year
  Sex: Male

DRUGS (10)
  1. ZOFRAN [Concomitant]
     Dosage: UNK
     Dates: start: 20110126
  2. NEULASTA [Suspect]
     Indication: CHEMOTHERAPY
     Dates: start: 20110128, end: 20110130
  3. CARBOPLATIN [Concomitant]
     Dosage: UNK
     Dates: start: 20110126
  4. POTASSIUM [Concomitant]
  5. ADVAIR [Concomitant]
     Dosage: UNK
  6. COMPAZINE [Concomitant]
  7. DECADRON [Concomitant]
     Dosage: UNK
     Dates: start: 20110127
  8. BENADRYL [Concomitant]
  9. LASIX [Concomitant]
  10. VP-16 [Concomitant]
     Dosage: UNK
     Dates: start: 20110126

REACTIONS (9)
  - BONE PAIN [None]
  - CHEST DISCOMFORT [None]
  - THROAT TIGHTNESS [None]
  - BRONCHOSPASM [None]
  - HYPOAESTHESIA [None]
  - LIP SWELLING [None]
  - DYSPNOEA [None]
  - RESPIRATORY DISORDER [None]
  - DRUG HYPERSENSITIVITY [None]
